FAERS Safety Report 10684642 (Version 3)
Quarter: 2015Q1

REPORT INFORMATION
  Report Type: Spontaneous
  Country: IT (occurrence: None)
  Receive Date: 20141229
  Receipt Date: 20150306
  Transmission Date: 20150720
  Serious: Yes (Hospitalization)
  Sender: FDA-Public Use
  Company Number: 2677401

PATIENT
  Age: 67 Year
  Sex: Male

DRUGS (2)
  1. CYTARABINE. [Suspect]
     Active Substance: CYTARABINE
     Indication: MYELODYSPLASTIC SYNDROME
     Dosage: 195 MG MILLIGRAM(S) (UNKNOWN), INTRAVENOUS (NOT OTHERWISE SPECIFIED)
     Route: 042
     Dates: start: 20141107, end: 20141113
  2. ZAVEDOS [Suspect]
     Active Substance: IDARUBICIN
     Indication: MYELODYSPLASTIC SYNDROME
     Dosage: 23.4 MG MILLIGRAM(S) (UNKNOWN), INTRAVENOUS (NOT OTHERWISE SPECIFIED)
     Route: 042
     Dates: start: 20141107, end: 20141111

REACTIONS (7)
  - Lung disorder [None]
  - Pseudomonas test positive [None]
  - Haematotoxicity [None]
  - Pulmonary mass [None]
  - Pulmonary toxicity [None]
  - Febrile neutropenia [None]
  - Blood culture positive [None]

NARRATIVE: CASE EVENT DATE: 20141116
